FAERS Safety Report 4485062-8 (Version None)
Quarter: 2004Q4

REPORT INFORMATION
  Report Type: 
  Country: None (occurrence: None)
  Receive Date: 20041026
  Receipt Date: 20040714
  Transmission Date: 20050328
  Serious: No
  Sender: FDA-Public Use
  Company Number: US-BRISTOL-MYERS SQUIBB COMPANY-12641700

PATIENT
  Age: 53 Year
  Sex: Male
  Weight: 111 kg

DRUGS (4)
  1. METAGLIP [Suspect]
     Indication: DIABETES MELLITUS
     Dosage: DOSE = 2.5MG/500 MG
     Route: 048
     Dates: start: 20030101
  2. NASACORT AQ [Concomitant]
  3. ZYRTEC [Concomitant]
  4. LESCOL [Concomitant]

REACTIONS (1)
  - DRUG INEFFECTIVE [None]
